FAERS Safety Report 6361629-7 (Version None)
Quarter: 2009Q3

REPORT INFORMATION
  Report Type: 
  Country: None (occurrence: None)
  Receive Date: 20090918
  Receipt Date: 20090910
  Transmission Date: 20100115
  Serious: Yes (Death, Hospitalization)
  Sender: FDA-Public Use
  Company Number: CH-NAPPMUNDI-DEU-2009-0005549

PATIENT
  Age: 49 Year
  Sex: Male

DRUGS (14)
  1. MST MUNDIPHARMA [Suspect]
     Dosage: 80 MG, TID
     Route: 048
     Dates: start: 20090523
  2. ZOLPIDEM WINTHROP [Interacting]
     Indication: DRUG USE FOR UNKNOWN INDICATION
     Dosage: 10 MG, DAILY
     Route: 048
     Dates: start: 20090401
  3. ANXIOLIT [Interacting]
     Indication: DRUG USE FOR UNKNOWN INDICATION
     Dosage: 15 MG, BID
     Route: 048
  4. SIRDALUD [Interacting]
     Indication: DRUG USE FOR UNKNOWN INDICATION
     Dosage: 2 MG, DAILY
     Route: 048
  5. DALACIN C                          /00166002/ [Concomitant]
  6. CIPROFLOX                          /00697201/ [Concomitant]
  7. PREDNISONE [Concomitant]
  8. BECOSYM [Concomitant]
  9. BENERVA [Concomitant]
  10. EUTHYROX [Concomitant]
  11. GABAPENTIN [Concomitant]
  12. LAXOBERON [Concomitant]
  13. FLUIMUCIL                          /00082801/ [Concomitant]
  14. NEXIUM [Concomitant]

REACTIONS (2)
  - OVERDOSE [None]
  - RESPIRATORY DISTRESS [None]
